FAERS Safety Report 4466788-9 (Version None)
Quarter: 2004Q3

REPORT INFORMATION
  Report Type: 
  Country: None (occurrence: None)
  Receive Date: 20040930
  Receipt Date: 20040917
  Transmission Date: 20050211
  Serious: Yes (Hospitalization)
  Sender: FDA-Public Use
  Company Number: HQWYE665730AUG04

PATIENT
  Age: 51 Year
  Sex: Female

DRUGS (15)
  1. EFFEXOR XR [Suspect]
     Indication: MAJOR DEPRESSION
     Dosage: 300 MG 1X PER 1 DAY, ORAL
     Route: 048
     Dates: start: 20020911, end: 20040824
  2. ALBUTEROL [Concomitant]
  3. NEXIUM [Concomitant]
  4. ASPIRIN [Concomitant]
  5. LISINOPRIL [Concomitant]
  6. SONATA [Concomitant]
  7. SEROQUEL [Concomitant]
  8. BENADRYL [Concomitant]
  9. TYLENOL PM (DIPHENHYDRAMINE/PARACETAMOL) [Concomitant]
  10. ASPIRIN [Concomitant]
  11. GARLIC (GARLIC) [Concomitant]
  12. VITAMIN C (ASCORBIC ACID) [Concomitant]
  13. VITAMIN E [Concomitant]
  14. CALCIUM (CALCIUM) [Concomitant]
  15. HYDROCHLOROTHIAZIDE/TRIAMTERENE (HYDROCHLOROTHIAZIDE/TRIAMTERENE) [Concomitant]

REACTIONS (7)
  - ANXIETY [None]
  - DISEASE RECURRENCE [None]
  - GENERAL PHYSICAL HEALTH DETERIORATION [None]
  - HALLUCINATION, VISUAL [None]
  - MAJOR DEPRESSION [None]
  - PSYCHIATRIC SYMPTOM [None]
  - SUICIDAL IDEATION [None]
